FAERS Safety Report 4368368-2 (Version None)
Quarter: 2004Q2

REPORT INFORMATION
  Report Type: 
  Country: None (occurrence: None)
  Receive Date: 20040602
  Receipt Date: 20040517
  Transmission Date: 20050107
  Serious: Yes (Other)
  Sender: FDA-Public Use
  Company Number: GB-BRISTOL-MYERS SQUIBB COMPANY-12588232

PATIENT
  Age: 70 Year
  Sex: Female
  Weight: 68 kg

DRUGS (5)
  1. KENALOG [Suspect]
     Indication: OSTEOARTHRITIS
     Route: 013
     Dates: start: 20040316, end: 20040316
  2. TIBOLONE [Interacting]
     Indication: MENOPAUSAL SYMPTOMS
     Route: 048
  3. VIOXX [Concomitant]
     Indication: OSTEOARTHRITIS
     Route: 048
  4. GLUCOSAMINE [Concomitant]
     Indication: OSTEOARTHRITIS
     Route: 048
  5. AMITRIPTYLINE HCL [Concomitant]
     Indication: PAIN
     Route: 048

REACTIONS (2)
  - DRUG INTERACTION [None]
  - POSTMENOPAUSAL HAEMORRHAGE [None]
